FAERS Safety Report 6599245-4 (Version None)
Quarter: 2010Q1

REPORT INFORMATION
  Report Type: 
  Country: None (occurrence: None)
  Receive Date: 20100224
  Receipt Date: 20100216
  Transmission Date: 20100710
  Serious: Yes (Hospitalization)
  Sender: FDA-Public Use
  Company Number: PHHY2010DE09460

PATIENT

DRUGS (1)
  1. TEGRETOL-XR [Suspect]
     Dosage: 1 IN MORNING AND 1.5 IN THE EVENING
     Route: 048

REACTIONS (1)
  - GASTRECTOMY [None]
